FAERS Safety Report 4397014-7 (Version None)
Quarter: 2004Q3

REPORT INFORMATION
  Report Type: 
  Country: None (occurrence: None)
  Receive Date: 20040714
  Receipt Date: 20040610
  Transmission Date: 20050211
  Serious: Yes (Other)
  Sender: FDA-Public Use
  Company Number: PHRM2004FR02076

PATIENT
  Age: 48 Year
  Sex: Female
  Weight: 70 kg

DRUGS (4)
  1. TRILEPTAL [Suspect]
     Indication: HYPOMANIA
     Dosage: 150 MG DAILY
     Route: 048
     Dates: start: 20040521, end: 20040610
  2. HALDOL [Concomitant]
     Dosage: 10 DROPS/DAY
     Route: 048
     Dates: start: 20040506
  3. DEPAKENE [Concomitant]
     Indication: HYPOMANIA
     Dosage: 200 TO 400 MG/DAY PRN
     Route: 048
     Dates: start: 20040608
  4. RIVOTRIL [Concomitant]
     Dosage: 20 DROPS/DAY
     Route: 048
     Dates: start: 20040608

REACTIONS (15)
  - ABDOMINAL PAIN [None]
  - ASTHENIA [None]
  - BRONCHOSPASM [None]
  - C-REACTIVE PROTEIN INCREASED [None]
  - CHILLS [None]
  - DYSPNOEA [None]
  - ELECTROPHORESIS PROTEIN ABNORMAL [None]
  - INFLAMMATION [None]
  - LEUKOCYTOSIS [None]
  - NEUTROPHILIA [None]
  - PYREXIA [None]
  - URTICARIA [None]
  - VASCULITIS [None]
  - WHEEZING [None]
  - WHITE BLOOD CELL COUNT DECREASED [None]
